FAERS Safety Report 9619789 (Version 2)
Quarter: 2013Q4

REPORT INFORMATION
  Report Type: Report from Study
  Country: JP (occurrence: JP)
  Receive Date: 20131014
  Receipt Date: 20131014
  Transmission Date: 20140711
  Serious: Yes (Death)
  Sender: FDA-Public Use
  Company Number: JP-TAKEDA-TCI2013A01129

PATIENT
  Age: 72 Year
  Sex: Female
  Weight: 49 kg

DRUGS (4)
  1. LANSOPRAZOLE [Suspect]
     Indication: PROPHYLAXIS AGAINST GASTROINTESTINAL ULCER
     Dosage: 20 MG, QD
     Route: 048
     Dates: start: 20121114, end: 20130221
  2. CELECOX [Concomitant]
     Indication: SPINAL OSTEOARTHRITIS
     Route: 048
     Dates: start: 20120714, end: 20130221
  3. CELECOX [Concomitant]
     Indication: SPINAL OSTEOARTHRITIS
  4. FOSAMAC [Concomitant]
     Indication: OSTEOPOROSIS
     Route: 048
     Dates: start: 20121017, end: 20130221

REACTIONS (1)
  - Death [Fatal]
